FAERS Safety Report 5914536-5 (Version None)
Quarter: 2008Q4

REPORT INFORMATION
  Report Type: 
  Country: None (occurrence: None)
  Receive Date: 20081008
  Receipt Date: 20080929
  Transmission Date: 20090506
  Serious: Yes (Hospitalization)
  Sender: FDA-Public Use
  Company Number: DSA_32476_2008

PATIENT
  Sex: Female

DRUGS (8)
  1. LORAZEPAM [Suspect]
     Dosage: (NOT THE PRESCRIBED AMOUNT ORAL)
     Route: 048
     Dates: start: 20080927, end: 20080927
  2. TREVILOR (TREVILOR - VENLAFAXINE HYDROCHLORIDE) (NOT SPECIFIED) [Suspect]
     Dosage: (NOT THE PRESCRIBED AMOUNT ORAL)
     Route: 048
     Dates: start: 20080927, end: 20080927
  3. AMINEURIN (AMINEURIN - AMITRIPTYLINE HYDROCHLORIDE) [Suspect]
     Dosage: (1000 MG NOT THE PRESCRIBED AMOUNT ORAL)
     Route: 048
     Dates: start: 20080927, end: 20080927
  4. CIRCADIN (CIRCADIN - MELATONIN) (NOT SPECIFIED) [Suspect]
     Dosage: 21 DF 1X, NOT THE PRESCRIBED AMOUNT ORAL)
     Route: 048
     Dates: start: 20080927, end: 20080927
  5. METOPROLOL (METOPROLOL) 100 MG [Suspect]
     Dosage: 3000 MG NOT THE PRESCRIBED AMOUNT ORAL)
     Route: 048
     Dates: start: 20080927, end: 20080927
  6. RAMIPRIL [Suspect]
     Dosage: 680 MG 1X, NOT THE PRESCRIBED AMOUNT ORAL)
     Route: 048
     Dates: start: 20080927, end: 20080927
  7. SEROQUEL [Suspect]
     Dosage: (1000 MG NOT THE PRESCRIBED AMOUNT ORAL)
     Route: 048
     Dates: start: 20080927, end: 20080927
  8. SIMVAHEXAL (SIMVAHEXAL - SIMVASTATIN) [Suspect]
     Dosage: (200 MG 1X, NOT THE PRESCRIBED AMOUNT ORAL)
     Route: 048
     Dates: start: 20080927, end: 20080927

REACTIONS (5)
  - ACIDOSIS [None]
  - HYPOTENSION [None]
  - MULTIPLE DRUG OVERDOSE INTENTIONAL [None]
  - SOPOR [None]
  - SUICIDE ATTEMPT [None]
